FAERS Safety Report 10434329 (Version 5)
Quarter: 2015Q2

REPORT INFORMATION
  Report Type: Report from Study
  Country: JP (occurrence: JP)
  Receive Date: 20140905
  Receipt Date: 20150417
  Transmission Date: 20150821
  Serious: Yes (Other)
  Sender: FDA-Public Use
  Company Number: JP-JNJFOC-20140901778

PATIENT
  Age: 73 Year
  Sex: Male
  Weight: 66 kg

DRUGS (8)
  1. DIOVAN [Concomitant]
     Active Substance: VALSARTAN
     Indication: HYPERTENSION
     Route: 048
  2. SOVRIAD [Suspect]
     Active Substance: SIMEPREVIR
     Indication: CHRONIC HEPATITIS C
     Route: 048
     Dates: start: 20140522, end: 20140813
  3. REBAMIPIDE [Concomitant]
     Active Substance: REBAMIPIDE
     Indication: PROPHYLAXIS
     Route: 048
     Dates: start: 20140522, end: 20140605
  4. PEGASYS [Suspect]
     Active Substance: PEGINTERFERON ALFA-2A
     Indication: CHRONIC HEPATITIS C
     Route: 058
     Dates: start: 20140522, end: 20141029
  5. AMLODIN OD [Concomitant]
     Active Substance: AMLODIPINE BESYLATE
     Indication: HYPERTENSION
     Route: 048
  6. RIBAVIRIN. [Suspect]
     Active Substance: RIBAVIRIN
     Indication: CHRONIC HEPATITIS C
     Route: 048
     Dates: start: 20140522, end: 20141105
  7. URSO [Concomitant]
     Active Substance: URSODIOL
     Indication: CHRONIC HEPATITIS C
     Route: 048
     Dates: end: 20140918
  8. LOXOPROFEN [Concomitant]
     Active Substance: LOXOPROFEN
     Indication: PROPHYLAXIS
     Route: 048
     Dates: start: 20140522, end: 20140605

REACTIONS (11)
  - Eyelid oedema [Recovered/Resolved]
  - Pruritus [Recovering/Resolving]
  - Cheilitis [Recovered/Resolved]
  - White blood cell count decreased [Recovered/Resolved]
  - Diarrhoea [Recovering/Resolving]
  - Blood thyroid stimulating hormone increased [Recovering/Resolving]
  - Rash [Recovered/Resolved]
  - Insomnia [Recovering/Resolving]
  - Lip dry [Recovered/Resolved]
  - Haemoglobin decreased [Recovered/Resolved]
  - Erythema of eyelid [Recovered/Resolved]

NARRATIVE: CASE EVENT DATE: 20140525
